FAERS Safety Report 6161582-5 (Version None)
Quarter: 2009Q2

REPORT INFORMATION
  Report Type: 
  Country: None (occurrence: None)
  Receive Date: 20090421
  Receipt Date: 20090409
  Transmission Date: 20091009
  Serious: Yes (Other)
  Sender: FDA-Public Use
  Company Number: NL-AVENTIS-200913929GDDC

PATIENT
  Age: 56 Year
  Sex: Female

DRUGS (4)
  1. ARAVA [Suspect]
     Indication: RHEUMATOID ARTHRITIS
     Dosage: DOSE: UNK
     Dates: start: 20050101
  2. FOSAMAX [Concomitant]
     Dosage: DOSE: UNK
  3. CELEBREX [Concomitant]
     Dosage: DOSE: UNK
  4. NEXIUM [Concomitant]
     Dosage: DOSE: UNK

REACTIONS (1)
  - CHRONIC LYMPHOCYTIC LEUKAEMIA [None]
